FAERS Safety Report 7382245-4 (Version None)
Quarter: 2011Q1

REPORT INFORMATION
  Report Type: 
  Country: None (occurrence: None)
  Receive Date: 20110329
  Receipt Date: 20110324
  Transmission Date: 20110831
  Serious: Yes (Hospitalization, Other)
  Sender: FDA-Public Use
  Company Number: PL-MERCK-1103POL00005

PATIENT
  Age: 12 Year
  Sex: Male
  Weight: 49 kg

DRUGS (2)
  1. SINGULAIR [Suspect]
     Route: 048
     Dates: start: 20100101, end: 20100101
  2. SINGULAIR [Suspect]
     Indication: SEASONAL ALLERGY
     Route: 048
     Dates: start: 20100101

REACTIONS (3)
  - LOSS OF CONSCIOUSNESS [None]
  - BENIGN ROLANDIC EPILEPSY [None]
  - OFF LABEL USE [None]
